FAERS Safety Report 15700474 (Version 3)
Quarter: 2019Q1

REPORT INFORMATION
  Report Type: Spontaneous
  Country: AR (occurrence: AR)
  Receive Date: 20181207
  Receipt Date: 20190215
  Transmission Date: 20190417
  Serious: Yes (Other)
  Sender: FDA-Public Use
  Company Number: AR-GILEAD-2018-0373684

PATIENT
  Age: 37 Year
  Sex: Male
  Weight: 84.2 kg

DRUGS (1)
  1. GENVOYA [Suspect]
     Active Substance: COBICISTAT\ELVITEGRAVIR\EMTRICITABINE\TENOFOVIR ALAFENAMIDE FUMARATE
     Indication: HIV INFECTION
     Dosage: 1 DF, QD
     Route: 048
     Dates: start: 20180926, end: 20181106

REACTIONS (3)
  - Erythema multiforme [Recovered/Resolved]
  - Emotional distress [Unknown]
  - Syphilis [Unknown]

NARRATIVE: CASE EVENT DATE: 201810
